FAERS Safety Report 20525087 (Version 1)
Quarter: 2022Q1

REPORT INFORMATION
  Report Type: Spontaneous
  Country: US (occurrence: None)
  Receive Date: 20220225
  Receipt Date: 20220225
  Transmission Date: 20220423
  Serious: Yes (Hospitalization)
  Sender: FDA-Public Use
  Company Number: None

PATIENT
  Age: 70 Year
  Sex: Male

DRUGS (1)
  1. DARZALEX [Suspect]
     Active Substance: DARATUMUMAB
     Dosage: 1100 MG OTHER ?
     Route: 042
     Dates: start: 202201

REACTIONS (1)
  - Cholecystitis infective [None]

NARRATIVE: CASE EVENT DATE: 20220121
